FAERS Safety Report 5368329-0 (Version None)
Quarter: 2007Q2

REPORT INFORMATION
  Report Type: 
  Country: None (occurrence: None)
  Receive Date: 20070619
  Receipt Date: 20070619
  Transmission Date: 20071010
  Serious: Yes (Hospitalization)
  Sender: FDA-Public Use
  Company Number: MIN-00186

PATIENT
  Age: 35 Year
  Sex: Female

DRUGS (1)
  1. MINOCYCLINE HCL [Suspect]
     Indication: CUTANEOUS SARCOIDOSIS
     Dosage: 200 MG DAILY, PO
     Route: 048

REACTIONS (4)
  - LOCAL SWELLING [None]
  - PAPILLARY THYROID CANCER [None]
  - SARCOIDOSIS [None]
  - THYROID DISORDER [None]
